FAERS Safety Report 6247423-6 (Version None)
Quarter: 2009Q2

REPORT INFORMATION
  Report Type: 
  Country: None (occurrence: None)
  Receive Date: 20090626
  Receipt Date: 20090615
  Transmission Date: 20091009
  Serious: Yes (Death)
  Sender: FDA-Public Use
  Company Number: FR-ROCHE-631886

PATIENT
  Sex: Male

DRUGS (2)
  1. MYCOPHENOLATE MOFETIL [Suspect]
     Indication: TRANSPLANT
     Route: 048
     Dates: start: 20090421, end: 20090426
  2. CORTANCYL [Suspect]
     Indication: TRANSPLANT
     Route: 048
     Dates: start: 20090421, end: 20090426

REACTIONS (1)
  - SUDDEN DEATH [None]
